FAERS Safety Report 18564038 (Version 1)
Quarter: 2020Q4

REPORT INFORMATION
  Report Type: Spontaneous
  Country: US (occurrence: US)
  Receive Date: 20201201
  Receipt Date: 20201201
  Transmission Date: 20210114
  Serious: No
  Sender: FDA-Public Use
  Company Number: US-BAYER-2020-257357

PATIENT
  Age: 66 Year
  Sex: Female

DRUGS (3)
  1. CLARITIN [Suspect]
     Active Substance: LORATADINE
     Indication: PLASMA CELL MYELOMA
     Dosage: 1 DF
     Route: 048
     Dates: start: 20201122
  2. CLARITIN [Suspect]
     Active Substance: LORATADINE
     Indication: BACK PAIN
  3. CLARITIN [Suspect]
     Active Substance: LORATADINE
     Indication: BONE PAIN

REACTIONS (3)
  - Insomnia [Unknown]
  - Product use in unapproved indication [Unknown]
  - Off label use [Unknown]

NARRATIVE: CASE EVENT DATE: 20201122
